FAERS Safety Report 10872695 (Version 1)
Quarter: 2015Q1

REPORT INFORMATION
  Report Type: Spontaneous
  Country: CH (occurrence: CH)
  Receive Date: 20150227
  Receipt Date: 20150227
  Transmission Date: 20150721
  Serious: Yes (Hospitalization, Other)
  Sender: FDA-Public Use
  Company Number: CH-PFIZER INC-2015020943

PATIENT
  Age: 62 Year
  Sex: Male

DRUGS (1)
  1. LYRICA [Suspect]
     Active Substance: PREGABALIN
     Indication: RESTLESS LEGS SYNDROME
     Dosage: 50 MG IN THE MORNING AND 350MG IN THE EVENING

REACTIONS (4)
  - Nasopharyngitis [Recovered/Resolved]
  - Product use issue [Unknown]
  - Asthenia [Recovered/Resolved]
  - Abasia [Unknown]
